FAERS Safety Report 7177593-7 (Version None)
Quarter: 2010Q4

REPORT INFORMATION
  Report Type: 
  Country: None (occurrence: None)
  Receive Date: 20101123
  Receipt Date: 20100930
  Transmission Date: 20110411
  Serious: No
  Sender: FDA-Public Use
  Company Number: 019769

PATIENT
  Sex: Female
  Weight: 78.1 kg

DRUGS (6)
  1. CIMZIA [Suspect]
     Indication: CROHN'S DISEASE
     Dosage: (400 MG INITIAL DOSE SUBCUTANEOUS)
     Route: 058
     Dates: start: 20100924
  2. FUROSEMIDE [Concomitant]
  3. KLOR-CON [Concomitant]
  4. IRON [Concomitant]
  5. VITAMINS NOS [Concomitant]
  6. ALEVE [Concomitant]

REACTIONS (4)
  - COUGH [None]
  - DIARRHOEA [None]
  - HEADACHE [None]
  - NASAL CONGESTION [None]
